FAERS Safety Report 9469729 (Version 6)
Quarter: 2013Q3

REPORT INFORMATION
  Report Type: Spontaneous
  Country: GB (occurrence: GB)
  Receive Date: 20130822
  Receipt Date: 20130924
  Transmission Date: 20140515
  Serious: Yes (Other)
  Sender: FDA-Public Use
  Company Number: PHFR2013GB004569

PATIENT
  Age: 26 Year
  Sex: Female

DRUGS (5)
  1. CLOZARIL [Suspect]
     Indication: SCHIZOPHRENIA
     Dosage: UNK
     Route: 048
     Dates: start: 20130624
  2. CLOZARIL [Suspect]
     Dosage: 325 MG
     Route: 048
     Dates: start: 20130716, end: 20130807
  3. ARIPIPRAZOLE [Concomitant]
     Indication: SCHIZOPHRENIA
     Dosage: 15 MG, UNK
     Route: 048
     Dates: start: 201306
  4. OLANZAPINE [Concomitant]
     Dosage: UNK UKN, UNK
  5. SODIUM VALPROATE [Concomitant]
     Indication: SCHIZOPHRENIA
     Dosage: 1750 MG, UNK
     Route: 048
     Dates: start: 2013

REACTIONS (4)
  - Neutropenia [Recovering/Resolving]
  - Urinary tract infection [Recovered/Resolved]
  - Lower respiratory tract infection [Recovered/Resolved]
  - White blood cell count decreased [Unknown]
